FAERS Safety Report 9267320 (Version 3)
Quarter: 2013Q2

REPORT INFORMATION
  Report Type: Spontaneous
  Country: US (occurrence: US)
  Receive Date: 20130502
  Receipt Date: 20130611
  Transmission Date: 20140414
  Serious: Yes (Hospitalization)
  Sender: FDA-Public Use
  Company Number: US-JNJFOC-20130413189

PATIENT
  Age: 47 Year
  Sex: Male

DRUGS (9)
  1. STELARA [Suspect]
     Indication: PSORIASIS
     Route: 058
  2. STELARA [Suspect]
     Indication: PSORIASIS
     Route: 058
     Dates: start: 201209
  3. LEVETIRACETAM [Concomitant]
     Route: 065
  4. HYDROCODONE [Concomitant]
     Route: 065
  5. LISINOPRIL [Concomitant]
     Route: 065
  6. LEVOTHYROXINE [Concomitant]
     Route: 065
  7. HALOBETASOL PROPIONATE [Concomitant]
     Route: 061
  8. ACETAMINOPHEN [Concomitant]
     Route: 065
  9. VECTICAL [Concomitant]
     Route: 061

REACTIONS (1)
  - Convulsion [Recovered/Resolved with Sequelae]
